FAERS Safety Report 6472028-1 (Version None)
Quarter: 2009Q4

REPORT INFORMATION
  Report Type: 
  Country: None (occurrence: None)
  Receive Date: 20091203
  Receipt Date: 20080912
  Transmission Date: 20100525
  Serious: Yes (Other)
  Sender: FDA-Public Use
  Company Number: TR-ELI_LILLY_AND_COMPANY-TR200804003065

PATIENT
  Sex: Female
  Weight: 84 kg

DRUGS (6)
  1. HUMULIN R [Suspect]
     Indication: DIABETES MELLITUS
     Dosage: 24 IU, EACH MORNING
     Route: 058
  2. HUMULIN R [Suspect]
     Dosage: 14 IU, DAILY NOON
     Route: 058
  3. HUMULIN R [Suspect]
     Dosage: 10 IU, EACH EVENING
     Route: 058
  4. HUMULIN N [Suspect]
     Indication: DIABETES MELLITUS
     Dosage: 22 IU, EACH NIGHT
     Route: 058
  5. NOVONORM [Concomitant]
     Indication: DIABETES MELLITUS
     Dosage: UNK, 3/D
     Route: 048
  6. GLUKOFEN [Concomitant]
     Indication: DIABETES MELLITUS
     Dosage: UNK, 3/D
     Route: 048

REACTIONS (2)
  - ABORTION SPONTANEOUS [None]
  - DRUG EXPOSURE DURING PREGNANCY [None]
